FAERS Safety Report 4993294-5 (Version None)
Quarter: 2006Q2

REPORT INFORMATION
  Report Type: 
  Country: None (occurrence: None)
  Receive Date: 20060505
  Receipt Date: 20060423
  Transmission Date: 20061013
  Serious: Yes (Death)
  Sender: FDA-Public Use
  Company Number: US-JNJFOC-20060500755

PATIENT
  Age: 55 Year
  Sex: Female

DRUGS (3)
  1. REOPRO [Suspect]
     Indication: ACUTE CORONARY SYNDROME
     Route: 042
  2. PLAVIX [Concomitant]
     Indication: CORONARY ARTERY SURGERY
  3. HEPARIN [Concomitant]
     Indication: CORONARY ARTERY SURGERY

REACTIONS (1)
  - HAEMORRHAGE INTRACRANIAL [None]
